FAERS Safety Report 5101917-5 (Version None)
Quarter: 2006Q3

REPORT INFORMATION
  Report Type: 
  Country: None (occurrence: None)
  Receive Date: 20060907
  Receipt Date: 20060828
  Transmission Date: 20061208
  Serious: Yes (Hospitalization)
  Sender: FDA-Public Use
  Company Number: 14422

PATIENT
  Age: 31 Year
  Sex: Female
  Weight: 81.6 kg

DRUGS (9)
  1. CYTARABINE [Suspect]
     Indication: ACUTE MYELOID LEUKAEMIA
     Dosage: 2835 MG  BID IV
     Route: 042
     Dates: start: 20060614, end: 20060618
  2. MEDROXYPROGESTERONE ACETATE [Concomitant]
  3. MOXIFLOXACIN HCL [Concomitant]
  4. ACYCLOVIR [Concomitant]
  5. PROCHLORPERAZINE MALEATE [Concomitant]
  6. VANCOMYCIN [Concomitant]
  7. CITALOPRAM HYDROBROMIDE [Concomitant]
  8. ITRACONAZOLE [Concomitant]
  9. ROCEPHIN [Concomitant]

REACTIONS (6)
  - ATELECTASIS [None]
  - DISEASE RECURRENCE [None]
  - FEBRILE NEUTROPENIA [None]
  - PLATELET COUNT DECREASED [None]
  - STAPHYLOCOCCAL BACTERAEMIA [None]
  - WHITE BLOOD CELL COUNT DECREASED [None]
